FAERS Safety Report 16746625 (Version 2)
Quarter: 2019Q4

REPORT INFORMATION
  Report Type: Spontaneous
  Country: US (occurrence: US)
  Receive Date: 20190827
  Receipt Date: 20191022
  Transmission Date: 20200122
  Serious: No
  Sender: FDA-Public Use
  Company Number: US-IPSEN BIOPHARMACEUTICALS, INC.-2019-14985

PATIENT
  Age: 54 Year
  Sex: Female

DRUGS (6)
  1. DYSPORT [Suspect]
     Active Substance: ABOBOTULINUMTOXINA
     Indication: SKIN WRINKLING
  2. DYSPORT [Suspect]
     Active Substance: ABOBOTULINUMTOXINA
     Indication: SKIN WRINKLING
     Dosage: 78 UNITS (FRONTALIS 25 UNITS: 10 SITES, CROW^S FEET 19 UNITS: 5 SITES AND GLABELLA 15 UNITS: 3 SITES
     Dates: start: 20190614, end: 20190614
  3. DYSPORT [Suspect]
     Active Substance: ABOBOTULINUMTOXINA
     Indication: OFF LABEL USE
  4. SCULPTRA AESTHETIC [Suspect]
     Active Substance: POLYLACTIDE, L-
     Indication: SKIN COSMETIC PROCEDURE
     Dosage: 3.5 TO EACH TEMPLE AND 4.5 TO EACH SUB MALLAR
     Route: 065
     Dates: start: 20190821, end: 20190821
  5. SCULPTRA AESTHETIC [Suspect]
     Active Substance: POLYLACTIDE, L-
     Dosage: 3.5 TO EACH TEMPLE AND 4.5 TO EACH SUB MALLAR
     Route: 065
     Dates: start: 20190614, end: 20190614
  6. DYSPORT [Suspect]
     Active Substance: ABOBOTULINUMTOXINA
     Indication: SKIN WRINKLING

REACTIONS (2)
  - Off label use [Unknown]
  - Arthralgia [Recovered/Resolved]

NARRATIVE: CASE EVENT DATE: 20190614
